FAERS Safety Report 6683990-6 (Version None)
Quarter: 2010Q2

REPORT INFORMATION
  Report Type: 
  Country: None (occurrence: None)
  Receive Date: 20100416
  Receipt Date: 20100405
  Transmission Date: 20101027
  Serious: Yes (Hospitalization, Other)
  Sender: FDA-Public Use
  Company Number: US-JNJFOC-20100402638

PATIENT
  Sex: Female
  Weight: 71.76 kg

DRUGS (28)
  1. REMICADE [Suspect]
     Indication: RHEUMATOID ARTHRITIS
     Dosage: DOSE #70
     Route: 042
  2. REMICADE [Suspect]
     Dosage: TOTAL 69 DOSES UNKNOWN DATES
     Route: 042
  3. TYLENOL-500 [Concomitant]
     Indication: PREMEDICATION
     Route: 048
  4. SOLU-CORTEF [Concomitant]
     Indication: PREMEDICATION
     Route: 042
  5. ASPIRIN [Concomitant]
  6. VITAMIN B COMPLEX CAP [Concomitant]
     Route: 048
  7. VITAMIN C [Concomitant]
     Route: 048
  8. ALLERGY MEDICATION [Concomitant]
  9. VITAMIN E (TOCOPHERYL ACETATE) [Concomitant]
  10. ALLEGRA [Concomitant]
     Route: 048
  11. PLAVIX [Concomitant]
     Route: 048
  12. NITROSTAT [Concomitant]
     Route: 060
  13. NASONEX [Concomitant]
     Dosage: DOSE 50 MCG
     Route: 045
  14. ATENOLOL [Concomitant]
     Route: 048
  15. BENAZEPRIL HYDROCHLORIDE AND HYDROCHLOROTHIAZIDE [Concomitant]
     Dosage: DOSE 10/12.5MG; 1 TABLET DAILY
     Route: 048
  16. FOSAMAX [Concomitant]
     Route: 048
  17. OMEPRAZOLE [Concomitant]
     Route: 048
  18. LIDODERM [Concomitant]
     Route: 062
  19. LIPITOR [Concomitant]
     Route: 048
  20. GUIATUSSIN DAC [Concomitant]
     Dosage: DOSE 1 TSP EVERY 4 HOURS AS NEEDED
     Route: 048
  21. CALCIUM WITH VITAMIN D [Concomitant]
     Route: 048
  22. METHOTREXATE [Concomitant]
     Route: 050
  23. PREDNISONE [Concomitant]
     Dosage: DOSE 5 MG/TABLET; 1-6 TABLETS DAILY AS DIRECTED
     Route: 048
  24. MELOXICAM [Concomitant]
     Route: 048
  25. ACETAMINOPHEN AND HYDROCODONE BITARTRATE [Concomitant]
     Dosage: DOSE 7.5MG/500 MG; 1-2 TABLETS EVERY 4-6 HOURS AS NEEDED
     Route: 048
  26. FOLIC ACID [Concomitant]
     Dosage: DOSE 1 TABLET DAILY EXCEPT DAY OF METHOTREXATE
     Route: 048
  27. CYCLOBENZAPRINE HCL [Concomitant]
     Dosage: 10MG TABLET; 1 TABLET TWICE DAILY AS NEEDED
     Route: 048
  28. TRAZODONE HCL [Concomitant]
     Dosage: DOSE 150 MG/TABLET; 1-2 TABLETS AT BEDTIME
     Route: 048

REACTIONS (9)
  - CHOLELITHIASIS [None]
  - DIVERTICULITIS [None]
  - HISTOPLASMOSIS DISSEMINATED [None]
  - HYPONATRAEMIA [None]
  - INFUSION RELATED REACTION [None]
  - PNEUMOTHORAX [None]
  - PRURITUS [None]
  - URINARY TRACT INFECTION [None]
  - URINARY TRACT NEOPLASM [None]
